FAERS Safety Report 18802554 (Version 3)
Quarter: 2021Q2

REPORT INFORMATION
  Report Type: Report from Study
  Country: JP (occurrence: JP)
  Receive Date: 20210128
  Receipt Date: 20210609
  Transmission Date: 20210717
  Serious: Yes (Hospitalization, Other)
  Sender: FDA-Public Use
  Company Number: JP-PFIZER INC-2020347043

PATIENT
  Age: 70 Year
  Sex: Male
  Weight: 58.9 kg

DRUGS (10)
  1. BRAFTOVI [Suspect]
     Active Substance: ENCORAFENIB
     Indication: MALIGNANT MELANOMA
     Dosage: 450 MG, DAILY
     Route: 048
     Dates: start: 20190604, end: 20200105
  2. BRAFTOVI [Suspect]
     Active Substance: ENCORAFENIB
     Dosage: UNK
     Route: 048
     Dates: start: 20201106
  3. MEKTOVI [Suspect]
     Active Substance: BINIMETINIB
     Dosage: 60 MG, DAILY
     Route: 048
     Dates: start: 20200115, end: 20200129
  4. MEKTOVI [Suspect]
     Active Substance: BINIMETINIB
     Dosage: 30 MG, DAILY
     Route: 048
     Dates: start: 20200228, end: 2020
  5. BRAFTOVI [Suspect]
     Active Substance: ENCORAFENIB
     Dosage: 200 MG, DAILY
     Route: 048
     Dates: start: 20200228, end: 2020
  6. MEKTOVI [Suspect]
     Active Substance: BINIMETINIB
     Dosage: UNK
     Route: 048
     Dates: start: 20201106
  7. BRAFTOVI [Suspect]
     Active Substance: ENCORAFENIB
     Dosage: UNK, EVERYDAY
     Route: 048
     Dates: start: 2020, end: 20201014
  8. MEKTOVI [Suspect]
     Active Substance: BINIMETINIB
     Indication: MALIGNANT MELANOMA
     Dosage: 90 MG, DAILY
     Route: 048
     Dates: start: 20190604, end: 20200105
  9. MEKTOVI [Suspect]
     Active Substance: BINIMETINIB
     Dosage: UNK UNK, EVERYDAY
     Route: 048
     Dates: start: 2020, end: 20201014
  10. BRAFTOVI [Suspect]
     Active Substance: ENCORAFENIB
     Dosage: 300 MG, DAILY
     Route: 048
     Dates: start: 20200115, end: 20200129

REACTIONS (6)
  - Anaemia [Recovered/Resolved]
  - Malaise [Recovered/Resolved]
  - Anaemia [Recovered/Resolved]
  - Hepatic failure [Recovered/Resolved]
  - C-reactive protein increased [Recovered/Resolved]
  - Pericardial effusion [Recovering/Resolving]

NARRATIVE: CASE EVENT DATE: 20200105
